FAERS Safety Report 17928229 (Version 1)
Quarter: 2020Q2

REPORT INFORMATION
  Report Type: Spontaneous
  Country: US (occurrence: US)
  Receive Date: 20200623
  Receipt Date: 20200623
  Transmission Date: 20200714
  Serious: Yes (Other)
  Sender: FDA-Public Use
  Company Number: US-CELLTRION INC.-2020US023399

PATIENT

DRUGS (1)
  1. INFLECTRA [Suspect]
     Active Substance: INFLIXIMAB-DYYB
     Indication: COLITIS ULCERATIVE
     Dosage: 900 MG (NEXT DOSE AT WEEK 2, THEN WEEK 6, AND EVERY 8 WEEKS THEREAFTER)
     Route: 042
     Dates: start: 20200530

REACTIONS (3)
  - Overdose [Unknown]
  - Colitis ulcerative [Unknown]
  - Product dose omission [Unknown]

NARRATIVE: CASE EVENT DATE: 20200612
